FAERS Safety Report 9380556 (Version 1)
Quarter: 2013Q3

REPORT INFORMATION
  Report Type: Spontaneous
  Country: IE (occurrence: IE)
  Receive Date: 20130702
  Receipt Date: 20130702
  Transmission Date: 20140515
  Serious: Yes (Other)
  Sender: FDA-Public Use
  Company Number: IE-PFIZER INC-2013194980

PATIENT
  Age: 81 Year
  Sex: Female

DRUGS (8)
  1. LYRICA [Suspect]
     Indication: TRIGEMINAL NEURALGIA
     Dosage: 25 MG, 1X/DAY
  2. LYRICA [Suspect]
     Dosage: 50 MG, 1X/DAY
     Route: 048
  3. CALCICHEW [Concomitant]
     Indication: OSTEOPOROSIS
     Dosage: 500 MG, 2X/DAY
     Route: 048
  4. TORVAN [Concomitant]
     Indication: HYPERLIPIDAEMIA
     Dosage: UNK
     Route: 048
  5. ANTEPSIN [Concomitant]
     Indication: OESOPHAGEAL STENOSIS
     Dosage: 4GM (2GM, 2 IN 1 DAY)
     Route: 048
  6. LANSOPRAZOLE [Concomitant]
     Dosage: 1 DF, 1X/DAY
     Route: 048
  7. FERRUM HAUSMANN FORT [Concomitant]
     Dosage: 2 DF, 2X/DAY
     Route: 048
  8. PROTELOS [Concomitant]
     Indication: OSTEOPOROSIS
     Dosage: UNK
     Route: 048

REACTIONS (6)
  - Mobility decreased [Recovered/Resolved]
  - Confusional state [Recovered/Resolved]
  - Decreased appetite [Recovered/Resolved]
  - Pain in extremity [Recovered/Resolved]
  - Oedema peripheral [Recovered/Resolved]
  - Masked facies [Recovered/Resolved]
